FAERS Safety Report 12108578 (Version 1)
Quarter: 2016Q1

REPORT INFORMATION
  Report Type: Spontaneous
  Country: US (occurrence: None)
  Receive Date: 20160222
  Receipt Date: 20160222
  Transmission Date: 20160526
  Serious: Yes (Hospitalization)
  Sender: FDA-Public Use
  Company Number: None

PATIENT
  Age: 86 Year
  Sex: Female
  Weight: 45.36 kg

DRUGS (2)
  1. KEPPRA [Suspect]
     Active Substance: LEVETIRACETAM
     Indication: ISCHAEMIC STROKE
     Dosage: 2 PILLS TWICE DAILY
     Dates: start: 20160202, end: 20160219
  2. SYNTHROID [Concomitant]
     Active Substance: LEVOTHYROXINE SODIUM

REACTIONS (7)
  - Limb injury [None]
  - Headache [None]
  - Suicidal ideation [None]
  - Agitation [None]
  - Hallucination [None]
  - Alopecia [None]
  - Confusional state [None]

NARRATIVE: CASE EVENT DATE: 20160213
